FAERS Safety Report 22398758 (Version 3)
Quarter: 2024Q4

REPORT INFORMATION
  Report Type: Spontaneous
  Country: US (occurrence: US)
  Receive Date: 20230602
  Receipt Date: 20241125
  Transmission Date: 20250115
  Serious: No
  Sender: SANOFI AVENTIS
  Company Number: US-SA-SAC20230601001279

PATIENT
  Age: 43 Year
  Sex: Female
  Weight: 121.1 kg

DRUGS (2)
  1. DUPIXENT [Suspect]
     Active Substance: DUPILUMAB
     Indication: Dermatitis atopic
     Dosage: 300 MG, QOW
     Route: 058
  2. LABETALOL HYDROCHLORIDE [Concomitant]
     Active Substance: LABETALOL HYDROCHLORIDE

REACTIONS (11)
  - Illness [Unknown]
  - Eyelid exfoliation [Recovered/Resolved]
  - Therapeutic product effect incomplete [Not Recovered/Not Resolved]
  - Skin fissures [Recovered/Resolved]
  - Swelling of eyelid [Recovered/Resolved]
  - Skin haemorrhage [Unknown]
  - Ocular hyperaemia [Recovered/Resolved]
  - Dry eye [Recovered/Resolved]
  - Hypersensitivity [Unknown]
  - Eye pruritus [Recovered/Resolved]
  - Eye irritation [Recovered/Resolved]
